FAERS Safety Report 21605142 (Version 1)
Quarter: 2022Q4

REPORT INFORMATION
  Report Type: Report from Study
  Country: US (occurrence: US)
  Receive Date: 20221116
  Receipt Date: 20221116
  Transmission Date: 20230113
  Serious: Yes (Death)
  Sender: FDA-Public Use
  Company Number: US-BAYER-2022P021721

PATIENT
  Age: 71 Year
  Sex: Male

DRUGS (2)
  1. ASPIRIN [Suspect]
     Active Substance: ASPIRIN
  2. WARFARIN [Suspect]
     Active Substance: WARFARIN

REACTIONS (3)
  - Post procedural haemorrhage [Fatal]
  - Shock haemorrhagic [Fatal]
  - Labelled drug-drug interaction medication error [Fatal]
